FAERS Safety Report 23698958 (Version 1)
Quarter: 2024Q2

REPORT INFORMATION
  Report Type: Spontaneous
  Country: ES (occurrence: ES)
  Receive Date: 20240402
  Receipt Date: 20240402
  Transmission Date: 20240717
  Serious: Yes (Other)
  Sender: FDA-Public Use
  Company Number: None

PATIENT
  Age: 63 Year
  Sex: Female

DRUGS (19)
  1. GEMCITABINE HYDROCHLORIDE [Interacting]
     Active Substance: GEMCITABINE HYDROCHLORIDE
     Indication: Haemophagocytic lymphohistiocytosis
     Route: 042
     Dates: start: 20231115, end: 20231122
  2. GEMCITABINE HYDROCHLORIDE [Interacting]
     Active Substance: GEMCITABINE HYDROCHLORIDE
     Indication: Angiocentric lymphoma
     Dosage: 1200 MG, DAILY
     Route: 042
     Dates: start: 20231226, end: 20231226
  3. ACETAMINOPHEN [Interacting]
     Active Substance: ACETAMINOPHEN
     Indication: Product used for unknown indication
     Route: 048
     Dates: start: 20230928, end: 20231010
  4. ERTAPENEM [Interacting]
     Active Substance: ERTAPENEM
     Indication: Haemophagocytic lymphohistiocytosis
     Dosage: 1 G, DAILY
     Route: 042
     Dates: start: 20231010, end: 20231013
  5. ERTAPENEM [Interacting]
     Active Substance: ERTAPENEM
     Indication: Angiocentric lymphoma
  6. METHOTREXATE [Interacting]
     Active Substance: METHOTREXATE
     Indication: Haemophagocytic lymphohistiocytosis
     Route: 042
     Dates: start: 20231014, end: 20231014
  7. METHOTREXATE [Interacting]
     Active Substance: METHOTREXATE
     Indication: Angiocentric lymphoma
  8. FLUCONAZOLE [Interacting]
     Active Substance: FLUCONAZOLE
     Indication: Haemophagocytic lymphohistiocytosis
     Route: 048
     Dates: start: 20231101, end: 20231109
  9. FLUCONAZOLE [Interacting]
     Active Substance: FLUCONAZOLE
     Indication: Angiocentric lymphoma
  10. CISPLATIN [Interacting]
     Active Substance: CISPLATIN
     Indication: Haemophagocytic lymphohistiocytosis
     Route: 042
     Dates: start: 20231116, end: 20231122
  11. CISPLATIN [Interacting]
     Active Substance: CISPLATIN
     Indication: Angiocentric lymphoma
  12. AMOXICILLIN\CLAVULANATE POTASSIUM [Interacting]
     Active Substance: AMOXICILLIN\CLAVULANATE POTASSIUM
     Indication: Haemophagocytic lymphohistiocytosis
     Route: 042
     Dates: start: 20230928, end: 20231009
  13. AMOXICILLIN\CLAVULANATE POTASSIUM [Interacting]
     Active Substance: AMOXICILLIN\CLAVULANATE POTASSIUM
     Indication: Angiocentric lymphoma
  14. FLUCONAZOLE [Interacting]
     Active Substance: FLUCONAZOLE
     Indication: Angiocentric lymphoma
     Route: 042
     Dates: start: 20231012, end: 20231014
  15. FLUCONAZOLE [Interacting]
     Active Substance: FLUCONAZOLE
     Indication: Haemophagocytic lymphohistiocytosis
  16. IFOSFAMIDE [Interacting]
     Active Substance: IFOSFAMIDE
     Indication: Haemophagocytic lymphohistiocytosis
     Route: 042
     Dates: start: 20231015, end: 20231017
  17. IFOSFAMIDE [Interacting]
     Active Substance: IFOSFAMIDE
     Indication: Angiocentric lymphoma
  18. ETOPOSIDE [Interacting]
     Active Substance: ETOPOSIDE
     Indication: Angiocentric lymphoma
     Route: 042
     Dates: start: 20231015, end: 20231017
  19. ETOPOSIDE [Interacting]
     Active Substance: ETOPOSIDE
     Indication: Haemophagocytic lymphohistiocytosis

REACTIONS (5)
  - Mixed liver injury [Recovered/Resolved]
  - Hyperbilirubinaemia [Recovered/Resolved]
  - Hyperbilirubinaemia [Recovered/Resolved]
  - Coagulopathy [Recovered/Resolved]
  - Mixed liver injury [Recovered/Resolved]

NARRATIVE: CASE EVENT DATE: 20231013
